FAERS Safety Report 24616433 (Version 7)
Quarter: 2025Q2

REPORT INFORMATION
  Report Type: Report from Study
  Country: US (occurrence: US)
  Receive Date: 20241114
  Receipt Date: 20250530
  Transmission Date: 20250716
  Serious: Yes (Other)
  Sender: ACADIA PHARMACEUTICALS
  Company Number: US-ACADIA PHARMACEUTICALS INC.-ACA-2024-TRF-006728

PATIENT
  Sex: Female

DRUGS (3)
  1. DAYBUE [Suspect]
     Active Substance: TROFINETIDE
     Indication: Rett syndrome
     Dosage: 35 MILLILITER, BID
     Route: 048
  2. HYDRALAZINE [Suspect]
     Active Substance: HYDRALAZINE HYDROCHLORIDE
  3. CLONIDINE [Suspect]
     Active Substance: CLONIDINE

REACTIONS (8)
  - Self-destructive behaviour [Not Recovered/Not Resolved]
  - Seizure [Not Recovered/Not Resolved]
  - Aggression [Not Recovered/Not Resolved]
  - Aerophagia [Unknown]
  - Agitation [Not Recovered/Not Resolved]
  - Pharyngitis streptococcal [Not Recovered/Not Resolved]
  - Irritability [Unknown]
  - Fatigue [Not Recovered/Not Resolved]
